FAERS Safety Report 8922728 (Version 2)
Quarter: 2013Q1

REPORT INFORMATION
  Report Type: Spontaneous
  Country: US (occurrence: None)
  Receive Date: 20121115
  Receipt Date: 20121116
  Transmission Date: 20140127
  Serious: Yes (Other)
  Sender: FDA-Public Use
  Company Number: JPI-P-026120

PATIENT
  Age: 41 Year
  Sex: Female

DRUGS (2)
  1. XYREM (500 MILLIGRAM/MILLILITERS, SOLUTION) (SODIUM OXYBATE) [Suspect]
     Indication: CATAPLEXY
     Dosage: 4.5 GM (2.25 GM, 2 IN 1 D), ORAL
     Route: 048
     Dates: start: 20070913, end: 2007
  2. MULTIPLE UNSPECIFIED MEDICATIONS [Concomitant]

REACTIONS (61)
  - Serotonin syndrome [None]
  - Convulsion [None]
  - Nervous system disorder [None]
  - Endocrine disorder [None]
  - Respiratory depression [None]
  - Drug hypersensitivity [None]
  - Weight increased [None]
  - Muscle twitching [None]
  - Systemic lupus erythematosus [None]
  - Psoriatic arthropathy [None]
  - Glomerular filtration rate decreased [None]
  - Rheumatoid arthritis [None]
  - Sinus tachycardia [None]
  - Autonomic neuropathy [None]
  - Condition aggravated [None]
  - Hot flush [None]
  - Labile blood pressure [None]
  - Hypokalaemia [None]
  - Muscle spasms [None]
  - Urinary hesitation [None]
  - Vitamin D deficiency [None]
  - Chest pain [None]
  - Hyperhidrosis [None]
  - Initial insomnia [None]
  - Middle insomnia [None]
  - Therapeutic response decreased [None]
  - Night sweats [None]
  - Migraine [None]
  - Pain in jaw [None]
  - Nausea [None]
  - Poor quality sleep [None]
  - Dissociative identity disorder [None]
  - Post-traumatic stress disorder [None]
  - Suicidal ideation [None]
  - Polycystic ovaries [None]
  - Psychotic disorder [None]
  - Hypoxia [None]
  - Arthralgia [None]
  - Pain [None]
  - Bradycardia [None]
  - Hypotension [None]
  - Breast neoplasm [None]
  - Spinal column stenosis [None]
  - Faecal incontinence [None]
  - Enuresis [None]
  - Micturition urgency [None]
  - Dermatitis exfoliative [None]
  - Adrenal cyst [None]
  - Blood sodium decreased [None]
  - Blood chloride decreased [None]
  - Blood potassium increased [None]
  - Thinking abnormal [None]
  - Menstruation irregular [None]
  - Lactation disorder [None]
  - Social phobia [None]
  - Speech disorder [None]
  - Cognitive disorder [None]
  - Irritability [None]
  - Confusional state [None]
  - Agitation [None]
  - Stress [None]
